FAERS Safety Report 13378253 (Version 1)
Quarter: 2017Q1

REPORT INFORMATION
  Report Type: Report from Study
  Country: None (occurrence: NC)
  Receive Date: 20170328
  Receipt Date: 20170328
  Transmission Date: 20170429
  Serious: Yes (Hospitalization)
  Sender: FDA-Public Use
  Company Number: NC-ARALEZ PHARMACEUTICALS R+D INC.-ARA-TP-NC-2017-240

PATIENT

DRUGS (1)
  1. METOPROLOL SUCCINATE. [Suspect]
     Active Substance: METOPROLOL SUCCINATE
     Indication: PRODUCT USED FOR UNKNOWN INDICATION
     Route: 048

REACTIONS (2)
  - Cardiac failure [Unknown]
  - Chronic obstructive pulmonary disease [Unknown]
